FAERS Safety Report 20579556 (Version 2)
Quarter: 2022Q1

REPORT INFORMATION
  Report Type: Report from Study
  Country: CO (occurrence: CO)
  Receive Date: 20220310
  Receipt Date: 20220326
  Transmission Date: 20220423
  Serious: Yes (Other)
  Sender: FDA-Public Use
  Company Number: CO-NOVARTISPH-NVSC2021CO282640

PATIENT
  Sex: Male

DRUGS (2)
  1. BROLUCIZUMAB [Suspect]
     Active Substance: BROLUCIZUMAB
     Indication: Neovascular age-related macular degeneration
     Dosage: 0.5 MG, QMO
     Route: 047
  2. BROLUCIZUMAB [Suspect]
     Active Substance: BROLUCIZUMAB
     Indication: Macular degeneration

REACTIONS (6)
  - Blindness unilateral [Unknown]
  - Cataract [Unknown]
  - Eye injury [Unknown]
  - Visual impairment [Unknown]
  - Incorrect dose administered [Unknown]
  - Drug ineffective [Unknown]
